FAERS Safety Report 8859433 (Version 1)
Quarter: 2012Q4

REPORT INFORMATION
  Report Type: Spontaneous
  Country: DK (occurrence: None)
  Receive Date: 20121023
  Receipt Date: 20121023
  Transmission Date: 20130627
  Serious: Yes (Other)
  Sender: FDA-Public Use
  Company Number: 2012MA012646

PATIENT
  Sex: Male

DRUGS (1)
  1. FINASTERIDE [Suspect]
     Indication: HAIR LOSS
     Route: 048
     Dates: start: 200709, end: 201209

REACTIONS (5)
  - Libido decreased [None]
  - Apathy [None]
  - Sleep disorder [None]
  - Nocturia [None]
  - Muscular weakness [None]
